FAERS Safety Report 20864789 (Version 1)
Quarter: 2022Q2

REPORT INFORMATION
  Report Type: Spontaneous
  Country: US (occurrence: US)
  Receive Date: 20220524
  Receipt Date: 20220524
  Transmission Date: 20220721
  Serious: Yes (Other)
  Sender: FDA-Public Use
  Company Number: US-ENDO PHARMACEUTICALS INC-2022-003154

PATIENT
  Sex: Female

DRUGS (2)
  1. SUPPRELIN LA [Suspect]
     Active Substance: HISTRELIN ACETATE
     Indication: Pituitary gonadotropin hyperfunction
     Dosage: 50 MG, ONCE A YEAR
     Route: 058
     Dates: start: 20220223
  2. SUPPRELIN LA [Suspect]
     Active Substance: HISTRELIN ACETATE
     Indication: Pituitary gonadotropin hyperfunction
     Dosage: 50 MG, ONCE A YEAR
     Route: 058
     Dates: start: 20220223

REACTIONS (4)
  - Surgery [Unknown]
  - Rash [Unknown]
  - Influenza like illness [Unknown]
  - Irritability [Unknown]

NARRATIVE: CASE EVENT DATE: 20220101
